FAERS Safety Report 24988873 (Version 8)
Quarter: 2025Q3

REPORT INFORMATION
  Report Type: Report from Study
  Country: US (occurrence: US)
  Receive Date: 20250220
  Receipt Date: 20250922
  Transmission Date: 20251021
  Serious: Yes (Other)
  Sender: TAKEDA
  Company Number: US-TAKEDA-2025TUS018062

PATIENT
  Age: 24 Year
  Sex: Female
  Weight: 75 kg

DRUGS (6)
  1. VEDOLIZUMAB [Suspect]
     Active Substance: VEDOLIZUMAB
     Indication: Colitis ulcerative
  2. VEDOLIZUMAB [Suspect]
     Active Substance: VEDOLIZUMAB
     Dosage: 300 MILLIGRAM, Q4WEEKS
     Dates: start: 202411, end: 202505
  3. VEDOLIZUMAB [Suspect]
     Active Substance: VEDOLIZUMAB
     Indication: Colitis ulcerative
     Dosage: 108 MILLIGRAM, Q2WEEKS
     Dates: start: 20250521
  4. VEDOLIZUMAB [Suspect]
     Active Substance: VEDOLIZUMAB
  5. IRON [Concomitant]
     Active Substance: IRON
  6. VITAMIN D3 [Concomitant]
     Active Substance: CHOLECALCIFEROL

REACTIONS (9)
  - Colitis ulcerative [Recovered/Resolved]
  - Escherichia infection [Not Recovered/Not Resolved]
  - Therapeutic reaction time decreased [Not Recovered/Not Resolved]
  - Injection site rash [Recovered/Resolved]
  - Product distribution issue [Unknown]
  - Product temperature excursion issue [Unknown]
  - Mucous stools [Unknown]
  - Frequent bowel movements [Unknown]
  - Injection site pruritus [Not Recovered/Not Resolved]

NARRATIVE: CASE EVENT DATE: 20241207
